FAERS Safety Report 6646945-3 (Version None)
Quarter: 2010Q1

REPORT INFORMATION
  Report Type: 
  Country: None (occurrence: None)
  Receive Date: 20100323
  Receipt Date: 20100315
  Transmission Date: 20100710
  Serious: Yes (Hospitalization)
  Sender: FDA-Public Use
  Company Number: ES-JNJFOC-20100304572

PATIENT
  Age: 85 Year
  Sex: Female

DRUGS (6)
  1. DURAGESIC-100 [Suspect]
     Indication: PAIN
     Route: 062
  2. QUETIAPINE [Interacting]
     Indication: AGGRESSION
     Route: 048
  3. NEURONTIN [Interacting]
     Indication: DRUG USE FOR UNKNOWN INDICATION
     Route: 048
  4. TRANSTEC [Interacting]
     Indication: PAIN
     Route: 062
  5. ENALAPRIL MALEATE [Concomitant]
     Indication: HYPERTENSION
     Route: 048
  6. ASPIRIN [Concomitant]
     Indication: PROPHYLAXIS
     Route: 048

REACTIONS (2)
  - DEPRESSED LEVEL OF CONSCIOUSNESS [None]
  - DRUG INTERACTION [None]
